FAERS Safety Report 9712115 (Version 1)
Quarter: 2013Q4

REPORT INFORMATION
  Report Type: Spontaneous
  Country: CA (occurrence: CA)
  Receive Date: 20131126
  Receipt Date: 20131126
  Transmission Date: 20140711
  Serious: Yes (Hospitalization, Disabling, Other)
  Sender: FDA-Public Use
  Company Number: CA-B.I. PHARMACEUTICALS,INC./RIDGEFIELD-2013-BI-38510CN

PATIENT
  Age: 81 Year
  Sex: Male
  Weight: 81.64 kg

DRUGS (8)
  1. PRADAX [Suspect]
     Dosage: 300 MG
     Route: 065
  2. ADALAT XL-SRT [Concomitant]
     Dosage: FORMULATION:EXTENDED RELEASE
  3. ASA [Concomitant]
  4. CARDANA [Concomitant]
  5. CELEXA [Concomitant]
  6. OXAZEPAM [Concomitant]
  7. PROSCAR [Concomitant]
  8. RYTHMOL [Concomitant]

REACTIONS (4)
  - Ascites [Not Recovered/Not Resolved]
  - Gastrointestinal haemorrhage [Not Recovered/Not Resolved]
  - Hepatic cirrhosis [Not Recovered/Not Resolved]
  - Hepatic enzyme increased [Not Recovered/Not Resolved]
